FAERS Safety Report 9848495 (Version 1)
Quarter: 2014Q1

REPORT INFORMATION
  Report Type: Spontaneous
  Country: US (occurrence: None)
  Receive Date: 20140122
  Receipt Date: 20140122
  Transmission Date: 20141002
  Serious: Yes (Death)
  Sender: FDA-Public Use
  Company Number: B0958805A

PATIENT
  Age: 46 Year
  Sex: Male

DRUGS (6)
  1. LAMOTRIGINE (FORMULATION UNKNOWN) (GENERIC) (LAMOTRIGINE) [Suspect]
     Route: 048
  2. CLONAZEPAM (FORMULATION UNKNOWN) (GENERIC) (CLONAZEPAM) [Suspect]
     Route: 048
  3. SALICYLATE [Suspect]
     Route: 048
  4. ETHANOL [Suspect]
     Route: 048
  5. SERTRALINE (FORMULATION UNKNOWN) (GENERIC) (SERTRALINE) [Suspect]
     Route: 048
  6. DOCUSATE [Suspect]
     Route: 048

REACTIONS (1)
  - Completed suicide [None]
